FAERS Safety Report 20533608 (Version 1)
Quarter: 2022Q1

REPORT INFORMATION
  Report Type: Spontaneous
  Country: IT (occurrence: IT)
  Receive Date: 20220301
  Receipt Date: 20220301
  Transmission Date: 20220424
  Serious: Yes (Other)
  Sender: FDA-Public Use
  Company Number: None

PATIENT
  Age: 80 Year
  Sex: Male

DRUGS (4)
  1. CIPROFLOXACIN\DEXAMETHASONE [Suspect]
     Active Substance: CIPROFLOXACIN\DEXAMETHASONE
     Indication: Nasopharyngitis
     Dosage: UNK
     Route: 065
     Dates: start: 20210803, end: 20210818
  2. BETAMETHASONE\TETRAHYDROZOLINE HYDROCHLORIDE [Suspect]
     Active Substance: BETAMETHASONE\TETRAHYDROZOLINE HYDROCHLORIDE
     Indication: Nasopharyngitis
     Dosage: UNK (BIORINIL 0,05% + 0,1% SPRAY NASALE, SOSPENSIONE)
     Route: 045
     Dates: start: 20210803, end: 20210818
  3. COUMADIN [Suspect]
     Active Substance: WARFARIN SODIUM
     Indication: Cardiac valve prosthesis user
     Dosage: 31.25 MG, QW
     Route: 048
     Dates: start: 19901025, end: 20220124
  4. CEFIXIME [Suspect]
     Active Substance: CEFIXIME
     Indication: Nasopharyngitis
     Dosage: UNK
     Route: 065
     Dates: start: 20210803, end: 20210818

REACTIONS (1)
  - International normalised ratio increased [Unknown]

NARRATIVE: CASE EVENT DATE: 20210818
